FAERS Safety Report 9320934 (Version 1)
Quarter: 2013Q2

REPORT INFORMATION
  Report Type: Spontaneous
  Country: BR (occurrence: BR)
  Receive Date: 20130531
  Receipt Date: 20130531
  Transmission Date: 20140414
  Serious: Yes (Other)
  Sender: FDA-Public Use
  Company Number: PHHY2013BR054691

PATIENT
  Sex: Female

DRUGS (2)
  1. TRILEPTAL [Suspect]
     Indication: CONVULSION
     Dosage: UNK UKN, UNK
  2. MABTHERA [Suspect]
     Indication: SYSTEMIC LUPUS ERYTHEMATOSUS
     Dosage: 2 DF, QMO
     Dates: start: 200702, end: 201210

REACTIONS (5)
  - Blood immunoglobulin G decreased [Unknown]
  - Hypergammaglobulinaemia [Not Recovered/Not Resolved]
  - Immunodeficiency [Unknown]
  - Convulsion [Unknown]
  - Systemic lupus erythematosus [Unknown]
